FAERS Safety Report 18313764 (Version 2)
Quarter: 2020Q4

REPORT INFORMATION
  Report Type: Spontaneous
  Country: US (occurrence: US)
  Receive Date: 20200925
  Receipt Date: 20201020
  Transmission Date: 20210113
  Serious: No
  Sender: FDA-Public Use
  Company Number: US-ASTRAZENECA-2020SF11881

PATIENT
  Age: 52 Year
  Sex: Female
  Weight: 88.5 kg

DRUGS (6)
  1. THYROID [Concomitant]
     Active Substance: LEVOTHYROXINE\LIOTHYRONINE
     Indication: THYROID DISORDER
     Dosage: UNKNOWN
     Route: 065
  2. BYDUREON BCISE [Suspect]
     Active Substance: EXENATIDE
     Indication: TYPE 2 DIABETES MELLITUS
     Route: 058
  3. NOVOLOG REGULAR [Concomitant]
     Dosage: UNKNOWN
     Route: 065
  4. VITAMIN E AND D [Concomitant]
     Dosage: UNKNOWN
     Route: 065
  5. POTASSIUM [Concomitant]
     Active Substance: POTASSIUM
     Dosage: UNKNOWN
     Route: 065
  6. NOVOLOG [Concomitant]
     Active Substance: INSULIN ASPART
     Dosage: UNKNOWN
     Route: 065

REACTIONS (7)
  - Wrong technique in device usage process [Unknown]
  - Product use issue [Unknown]
  - Blood glucose increased [Unknown]
  - Weight decreased [Unknown]
  - Device issue [Unknown]
  - Product dose omission issue [Recovered/Resolved]
  - Device leakage [Unknown]
